FAERS Safety Report 5214349-6 (Version None)
Quarter: 2007Q1

REPORT INFORMATION
  Report Type: 
  Country: None (occurrence: None)
  Receive Date: 20070122
  Receipt Date: 20070110
  Transmission Date: 20070707
  Serious: Yes (Death, Life-Threatening, Hospitalization)
  Sender: FDA-Public Use
  Company Number: FR-AMGEN-UK206278

PATIENT
  Age: 77 Year
  Sex: Male
  Weight: 87 kg

DRUGS (3)
  1. ARANESP [Suspect]
     Indication: RENAL FAILURE CHRONIC
     Route: 040
     Dates: start: 20040101, end: 20061129
  2. FRAGMIN [Suspect]
     Route: 042
     Dates: start: 20061129, end: 20061129
  3. VENOFER [Concomitant]
     Route: 065

REACTIONS (19)
  - ABDOMINAL PAIN [None]
  - ANAEMIA [None]
  - ATRIOVENTRICULAR BLOCK [None]
  - BRADYCARDIA [None]
  - CARDIAC ARREST [None]
  - CHILLS [None]
  - DIARRHOEA [None]
  - DYSPNOEA [None]
  - ERYTHROMELALGIA [None]
  - GASTROINTESTINAL HAEMORRHAGE [None]
  - GASTROINTESTINAL ISCHAEMIA [None]
  - HAEMODYNAMIC INSTABILITY [None]
  - HAEMOLYSIS [None]
  - HYPERKALAEMIA [None]
  - LACTIC ACIDOSIS [None]
  - MUCOSAL HAEMORRHAGE [None]
  - PYREXIA [None]
  - SHOCK [None]
  - THROMBOSIS [None]
